FAERS Safety Report 7589328-4 (Version None)
Quarter: 2011Q3

REPORT INFORMATION
  Report Type: 
  Country: None (occurrence: None)
  Receive Date: 20110705
  Receipt Date: 20110622
  Transmission Date: 20111222
  Serious: Yes (Other)
  Sender: FDA-Public Use
  Company Number: US-ROCHE-485883

PATIENT
  Sex: Female
  Weight: 56.2 kg

DRUGS (5)
  1. E.E.S. [Concomitant]
  2. ACCUTANE [Suspect]
     Route: 048
     Dates: start: 19940520, end: 19940923
  3. TRIPHASIL-21 [Concomitant]
  4. ACCUTANE [Suspect]
     Route: 048
     Dates: start: 19930413, end: 19930814
  5. KEFLEX [Concomitant]

REACTIONS (32)
  - CROHN'S DISEASE [None]
  - ARTHRITIS [None]
  - SYSTEMIC LUPUS ERYTHEMATOSUS [None]
  - GASTROOESOPHAGEAL REFLUX DISEASE [None]
  - HYPERTENSION [None]
  - ARTHROPATHY [None]
  - FEMALE GENITAL TRACT FISTULA [None]
  - CARDIAC MURMUR [None]
  - PANIC ATTACK [None]
  - WEIGHT INCREASED [None]
  - EMOTIONAL DISORDER [None]
  - PREGNANCY [None]
  - COLON INJURY [None]
  - VAGINAL FISTULA [None]
  - BLOOD CHOLESTEROL INCREASED [None]
  - IRRITABLE BOWEL SYNDROME [None]
  - PAIN [None]
  - MAMMOPLASTY [None]
  - COLITIS [None]
  - GASTROINTESTINAL INJURY [None]
  - ANAL ABSCESS [None]
  - DEPRESSION [None]
  - ANAEMIA [None]
  - ANXIETY [None]
  - INSOMNIA [None]
  - OSTEOPOROSIS POSTMENOPAUSAL [None]
  - INFLAMMATORY BOWEL DISEASE [None]
  - NIGHT BLINDNESS [None]
  - BACK PAIN [None]
  - FISTULA DISCHARGE [None]
  - ANAL FISTULA [None]
  - REFUSAL OF TREATMENT BY PATIENT [None]
